FAERS Safety Report 12645131 (Version 1)
Quarter: 2016Q3

REPORT INFORMATION
  Report Type: Spontaneous
  Country: US (occurrence: US)
  Receive Date: 20160811
  Receipt Date: 20160811
  Transmission Date: 20161109
  Serious: Yes (Other)
  Sender: FDA-Public Use
  Company Number: US-BAYER-2016-139563

PATIENT
  Age: 54 Year
  Sex: Female
  Weight: 63.49 kg

DRUGS (1)
  1. DR. SCHOLLS CALLUS REMOVERS [Suspect]
     Active Substance: SALICYLIC ACID
     Dosage: 1 DF, UNK
     Dates: start: 20160710

REACTIONS (3)
  - Skin induration [Not Recovered/Not Resolved]
  - Skin necrosis [None]
  - Gait disturbance [Not Recovered/Not Resolved]

NARRATIVE: CASE EVENT DATE: 20160710
